FAERS Safety Report 6979612-7 (Version None)
Quarter: 2010Q3

REPORT INFORMATION
  Report Type: 
  Country: None (occurrence: None)
  Receive Date: 20100910
  Receipt Date: 20100910
  Transmission Date: 20110219
  Serious: Yes (Hospitalization)
  Sender: FDA-Public Use
  Company Number: None

PATIENT
  Sex: Male
  Weight: 77.3 kg

DRUGS (2)
  1. CISPLATIN [Suspect]
     Dosage: 141 MG
     Dates: end: 20100824
  2. ETOPOSIDE [Suspect]
     Dosage: 564 MG
     Dates: end: 20100826

REACTIONS (7)
  - BACK PAIN [None]
  - BACTERIAL TEST [None]
  - CHILLS [None]
  - NEUTROPHIL COUNT DECREASED [None]
  - PYREXIA [None]
  - WHITE BLOOD CELL COUNT DECREASED [None]
  - WHITE BLOOD CELLS URINE POSITIVE [None]
